FAERS Safety Report 9109521 (Version 1)
Quarter: 2013Q1

REPORT INFORMATION
  Report Type: Spontaneous
  Country: FR (occurrence: FR)
  Receive Date: 20130222
  Receipt Date: 20130222
  Transmission Date: 20140127
  Serious: Yes (Life-Threatening, Hospitalization)
  Sender: FDA-Public Use
  Company Number: FR-B.I. PHARMACEUTICALS,INC./RIDGEFIELD-2013-FF-00520FF

PATIENT
  Sex: 0

DRUGS (1)
  1. PRADAXA [Suspect]

REACTIONS (1)
  - Hepatitis [Unknown]
